FAERS Safety Report 9527972 (Version 1)
Quarter: 2013Q3

REPORT INFORMATION
  Report Type: Spontaneous
  Country: US (occurrence: None)
  Receive Date: 20130917
  Receipt Date: 20130917
  Transmission Date: 20140515
  Serious: Yes (Life-Threatening, Hospitalization)
  Sender: FDA-Public Use
  Company Number: None

PATIENT
  Age: 59 Year
  Sex: Male
  Weight: 128.2 kg

DRUGS (3)
  1. DEPO-MEDROL [Suspect]
     Indication: PAIN
     Dosage: 80 MG  ONE TIME INJECTION  INTRATHECAL @C7-T1 UNDER FLUOROSCOPY
     Route: 037
     Dates: start: 20130903
  2. SODIUM CHLORIDE [Suspect]
     Indication: MEDICATION DILUTION
     Dosage: 2 ML  ONE TIME INJECTION  INTRATHECAL @C7-T1 UNDER FLUOROSCOPY
     Route: 037
     Dates: start: 20130903
  3. OMNIPAQUE CONTRAST [Concomitant]

REACTIONS (3)
  - Meningitis [None]
  - Product contamination microbial [None]
  - Fungal test positive [None]
